FAERS Safety Report 24416334 (Version 6)
Quarter: 2024Q4

REPORT INFORMATION
  Report Type: Spontaneous
  Country: JP (occurrence: JP)
  Receive Date: 20241009
  Receipt Date: 20241224
  Transmission Date: 20250115
  Serious: Yes (Death, Hospitalization, Other)
  Sender: MERCK
  Company Number: JP-MSD-M2024-39735

PATIENT
  Age: 43 Year
  Sex: Female
  Weight: 49 kg

DRUGS (1)
  1. KEYTRUDA [Suspect]
     Active Substance: PEMBROLIZUMAB
     Indication: Triple negative breast cancer
     Dosage: 200 MILLIGRAM, Q3W
     Route: 041
     Dates: end: 202405

REACTIONS (3)
  - Immune-mediated encephalitis [Fatal]
  - Pathological fracture [Unknown]
  - Cancer pain [Unknown]

NARRATIVE: CASE EVENT DATE: 20240701
